FAERS Safety Report 4276935-X (Version None)
Quarter: 2004Q1

REPORT INFORMATION
  Report Type: 
  Country: None (occurrence: None)
  Receive Date: 20040120
  Receipt Date: 20040105
  Transmission Date: 20041129
  Serious: Yes (Death)
  Sender: FDA-Public Use
  Company Number: R300945-PAP-USA

PATIENT
  Age: 77 Year
  Sex: Female

DRUGS (1)
  1. ACIPHEX [Suspect]
     Dosage: ORAL
     Route: 048

REACTIONS (2)
  - MALIGNANT NEOPLASM PROGRESSION [None]
  - PANCREATIC CARCINOMA [None]
